FAERS Safety Report 10050722 (Version 1)
Quarter: 2014Q2

REPORT INFORMATION
  Report Type: Spontaneous
  Country: US (occurrence: US)
  Receive Date: 20140401
  Receipt Date: 20140401
  Transmission Date: 20141212
  Serious: No
  Sender: FDA-Public Use
  Company Number: US-ASTRAZENECA-2013SE69720

PATIENT
  Age: 52 Year
  Sex: Male
  Weight: 81.6 kg

DRUGS (4)
  1. NEXIUM [Suspect]
     Indication: GASTROOESOPHAGEAL REFLUX DISEASE
     Route: 048
     Dates: start: 2011, end: 201308
  2. NEXIUM [Suspect]
     Indication: GASTRITIS
     Route: 048
     Dates: start: 2011, end: 201308
  3. UNSPECIFIED MEDICATION [Suspect]
     Indication: ABDOMINAL DISCOMFORT
     Route: 065
  4. PLAVIX [Concomitant]
     Indication: MYOCARDIAL INFARCTION
     Route: 048
     Dates: start: 2003

REACTIONS (5)
  - Aphagia [Unknown]
  - Malaise [Unknown]
  - Abdominal pain [Unknown]
  - Drug dose omission [Unknown]
  - Drug ineffective [Unknown]
